FAERS Safety Report 9093931 (Version 1)
Quarter: 2013Q1

REPORT INFORMATION
  Report Type: Spontaneous
  Country: US (occurrence: None)
  Receive Date: 20130214
  Receipt Date: 20130214
  Transmission Date: 20140127
  Serious: Yes (Other)
  Sender: FDA-Public Use
  Company Number: None

PATIENT
  Age: 37 Year
  Sex: Female
  Weight: 138 kg

DRUGS (2)
  1. NUCYNTA [Suspect]
     Dosage: EVERY 6 HOURS
     Route: 048
  2. EXALGO [Suspect]
     Dosage: ONCE DAILY
     Route: 048

REACTIONS (1)
  - Diplopia [None]
